FAERS Safety Report 12145505 (Version 2)
Quarter: 2016Q1

REPORT INFORMATION
  Report Type: Other
  Country: IT (occurrence: IT)
  Receive Date: 20160304
  Receipt Date: 20160310
  Transmission Date: 20160526
  Serious: Yes (Hospitalization)
  Sender: FDA-Public Use
  Company Number: IT-MYLANLABS-2016M1008429

PATIENT

DRUGS (4)
  1. ENALAPRIL [Suspect]
     Active Substance: ENALAPRIL
     Indication: PRODUCT USED FOR UNKNOWN INDICATION
     Dosage: 10 MG, QD
  2. ENALAPRIL [Suspect]
     Active Substance: ENALAPRIL
     Dosage: 20 MG, QD
     Route: 048
     Dates: start: 20160122
  3. HALCION [Concomitant]
     Active Substance: TRIAZOLAM
     Indication: PRODUCT USED FOR UNKNOWN INDICATION
     Dosage: UNK
  4. LASIX [Concomitant]
     Active Substance: FUROSEMIDE
     Indication: PRODUCT USED FOR UNKNOWN INDICATION
     Dosage: UNK

REACTIONS (10)
  - Asthenia [Recovering/Resolving]
  - Repetitive speech [Unknown]
  - Drug abuse [Recovering/Resolving]
  - Orthostatic hypotension [Recovering/Resolving]
  - Eye movement disorder [Recovering/Resolving]
  - Syncope [Recovering/Resolving]
  - Aphasia [Recovering/Resolving]
  - Incorrect dose administered [Unknown]
  - Confusional state [Unknown]
  - Diarrhoea [Unknown]

NARRATIVE: CASE EVENT DATE: 2016
